FAERS Safety Report 5657157-4 (Version None)
Quarter: 2008Q1

REPORT INFORMATION
  Report Type: 
  Country: None (occurrence: None)
  Receive Date: 20080310
  Receipt Date: 20080226
  Transmission Date: 20080703
  Serious: Yes (Hospitalization, Disabling)
  Sender: FDA-Public Use
  Company Number: US-MERCK-0710USA04005

PATIENT
  Age: 77 Year
  Sex: Female
  Weight: 61 kg

DRUGS (10)
  1. FLEXICAMIN B12 INJECTION [Suspect]
     Indication: PERNICIOUS ANAEMIA
     Route: 048
     Dates: start: 19980101, end: 20060101
  2. FLEXICAMIN B12 INJECTION [Suspect]
     Route: 065
     Dates: start: 19800101
  3. FLEXICAMIN B12 INJECTION [Suspect]
     Indication: FRACTURE
     Route: 048
     Dates: start: 19980101, end: 20060101
  4. FLEXICAMIN B12 INJECTION [Suspect]
     Route: 065
     Dates: start: 19800101
  5. SYNTHROID [Concomitant]
     Route: 065
     Dates: start: 19660101
  6. PREVACID [Concomitant]
     Indication: GASTROOESOPHAGEAL REFLUX DISEASE
     Route: 065
     Dates: start: 20020101
  7. TUMS [Concomitant]
     Route: 065
  8. EVISTA [Concomitant]
     Route: 065
  9. FOSAMAX [Suspect]
     Indication: FRACTURE
     Route: 048
     Dates: start: 19980101
  10. FOSAMAX [Suspect]
     Indication: OSTEOPOROSIS
     Route: 048
     Dates: start: 19980101

REACTIONS (34)
  - ABSCESS [None]
  - ADVERSE DRUG REACTION [None]
  - ARTHRALGIA [None]
  - BONE PAIN [None]
  - BRONCHITIS [None]
  - CARDIAC TAMPONADE [None]
  - CATHETER RELATED COMPLICATION [None]
  - CHEST DISCOMFORT [None]
  - CHEST PAIN [None]
  - COUGH [None]
  - DENTAL CARIES [None]
  - DYSPNOEA EXERTIONAL [None]
  - FALL [None]
  - GASTRITIS [None]
  - GASTROOESOPHAGEAL REFLUX DISEASE [None]
  - INTERVERTEBRAL DISC DEGENERATION [None]
  - MONONEUROPATHY [None]
  - MUCOSAL ULCERATION [None]
  - OESOPHAGEAL STENOSIS [None]
  - OSTEOMYELITIS [None]
  - PERICARDIAL HAEMORRHAGE [None]
  - PLEURAL EFFUSION [None]
  - PNEUMONIA [None]
  - SINUS HEADACHE [None]
  - SKIN DISORDER [None]
  - SKIN ULCER [None]
  - SOFT TISSUE INJURY [None]
  - SPINAL COMPRESSION FRACTURE [None]
  - STRESS [None]
  - SYNCOPE [None]
  - VERTIGO [None]
  - VITH NERVE PARALYSIS [None]
  - WEIGHT DECREASED [None]
  - WOUND INFECTION [None]
